FAERS Safety Report 4895418-7 (Version None)
Quarter: 2006Q1

REPORT INFORMATION
  Report Type: 
  Country: None (occurrence: None)
  Receive Date: 20060130
  Receipt Date: 20051007
  Transmission Date: 20060701
  Serious: No
  Sender: FDA-Public Use
  Company Number: US-GLAXOSMITHKLINE-A0577587A

PATIENT
  Age: 35 Year
  Sex: Female

DRUGS (6)
  1. COMBIVIR [Suspect]
     Indication: HIV INFECTION
     Dosage: 1TAB TWICE PER DAY
     Route: 048
  2. MEPRON [Concomitant]
  3. IRON [Concomitant]
  4. ZITHROMAX [Concomitant]
  5. PROCRIT [Concomitant]
  6. KALETRA [Concomitant]

REACTIONS (5)
  - APHTHOUS STOMATITIS [None]
  - GLOSSODYNIA [None]
  - ORAL PAIN [None]
  - PALPITATIONS [None]
  - SKIN DISCOLOURATION [None]
